FAERS Safety Report 6674593-8 (Version None)
Quarter: 2010Q2

REPORT INFORMATION
  Report Type: 
  Country: None (occurrence: None)
  Receive Date: 20100409
  Receipt Date: 20100329
  Transmission Date: 20101027
  Serious: Yes (Hospitalization)
  Sender: FDA-Public Use
  Company Number: BE-ROCHE-657459

PATIENT
  Sex: Female
  Weight: 68.4 kg

DRUGS (9)
  1. BEVACIZUMAB [Suspect]
     Dosage: TOTAL DOSE: 1020 MG, DOSAGE FORM: VIALS. DATE OF LAST DOSE PRIOR TO SAE: 02 SEP 2009
     Route: 042
     Dates: start: 20090414
  2. TRASTUZUMAB [Suspect]
     Dosage: TOTAL DOSE: 410 MG, DOSAGE FORM:VIALS. DATE OF LAST DOSE PRIOR TO SAE: 02 SEP 2009
     Route: 042
     Dates: start: 20090414
  3. DOCETAXEL [Suspect]
     Dosage: TOTAL DOSE: 110 MG, DOSAGE FORM: VIALS. DATE OF LAST DOSE PRIOR TO SAE: 13 AUG 2009
     Route: 042
     Dates: start: 20090414
  4. CARBOPLATIN [Suspect]
     Dosage: DOSE LEVEL: 6 AUC,DOSAGE FORM: VIALS. DATE OF LAST DOSE PRIOR TO SAE: 13 AUG 2009. TOTAL DOSE:470 MG
     Route: 042
     Dates: start: 20090414
  5. DAFALGAN FORTE [Concomitant]
     Dosage: FREQUENCY: PRN
     Route: 048
  6. NEUROBION [Concomitant]
     Route: 030
  7. TOBREX [Concomitant]
     Dosage: DRUG NAME REPORTED AS 5 DER/D
     Dates: start: 20090910
  8. MEDROL [Concomitant]
     Dosage: MEDROL 16 MG
     Route: 048
     Dates: start: 20090912, end: 20090915
  9. OMEPRAZOLE [Concomitant]

REACTIONS (2)
  - CARDIOMYOPATHY [None]
  - PNEUMONIA [None]
